FAERS Safety Report 25900642 (Version 1)
Quarter: 2025Q4

REPORT INFORMATION
  Report Type: Report from Study
  Country: CA (occurrence: CA)
  Receive Date: 20251009
  Receipt Date: 20251009
  Transmission Date: 20260118
  Serious: No
  Sender: MIRUM PHARMACEUTICALS
  Company Number: CA-MIRUM PHARMACEUTICALS, INC.-CA-MIR-25-00714

PATIENT

DRUGS (1)
  1. LIVMARLI [Suspect]
     Active Substance: MARALIXIBAT CHLORIDE
     Indication: Alagille syndrome
     Dosage: 0.3 MILLILITER, QD
     Route: 048
     Dates: start: 20250405

REACTIONS (2)
  - Bile acids increased [Recovering/Resolving]
  - Weight increased [Recovering/Resolving]

NARRATIVE: CASE EVENT DATE: 20250501
